FAERS Safety Report 4930363-X (Version None)
Quarter: 2006Q1

REPORT INFORMATION
  Report Type: 
  Country: None (occurrence: None)
  Receive Date: 20060302
  Receipt Date: 20060228
  Transmission Date: 20060701
  Serious: Yes (Other)
  Sender: FDA-Public Use
  Company Number: US-GLAXOSMITHKLINE-A0595549A

PATIENT
  Age: 78 Year
  Sex: Male

DRUGS (5)
  1. COREG [Suspect]
     Indication: HYPERTENSION
     Dosage: 25MG TWICE PER DAY
     Route: 048
     Dates: start: 20050801
  2. CARDIZEM [Suspect]
  3. HYDROXYUREA [Concomitant]
  4. ZETIA [Concomitant]
  5. VITAMINS [Concomitant]

REACTIONS (2)
  - DYSPNOEA EXACERBATED [None]
  - THROMBOCYTOPENIA [None]
